FAERS Safety Report 16144357 (Version 2)
Quarter: 2019Q2

REPORT INFORMATION
  Report Type: Report from Study
  Country: None (occurrence: CA)
  Receive Date: 20190401
  Receipt Date: 20190529
  Transmission Date: 20190711
  Serious: No
  Sender: FDA-Public Use
  Company Number: CA-ABBVIE-19K-028-2620120-00

PATIENT
  Sex: Female

DRUGS (1)
  1. HUMIRA [Suspect]
     Active Substance: ADALIMUMAB
     Indication: HIDRADENITIS
     Route: 058
     Dates: start: 20150320

REACTIONS (7)
  - Skin lesion [Not Recovered/Not Resolved]
  - Skin injury [Not Recovered/Not Resolved]
  - Breast injury [Not Recovered/Not Resolved]
  - Scar [Not Recovered/Not Resolved]
  - Drug ineffective [Not Recovered/Not Resolved]
  - Hidradenitis [Not Recovered/Not Resolved]
  - Tissue injury [Not Recovered/Not Resolved]
